FAERS Safety Report 17527991 (Version 3)
Quarter: 2020Q4

REPORT INFORMATION
  Report Type: Report from Study
  Country: US (occurrence: US)
  Receive Date: 20200311
  Receipt Date: 20201229
  Transmission Date: 20210113
  Serious: Yes (Death, Hospitalization)
  Sender: FDA-Public Use
  Company Number: US-BAUSCH-BL-2020-007672

PATIENT
  Age: 67 Year
  Sex: Male

DRUGS (2)
  1. XIFAXAN [Suspect]
     Active Substance: RIFAXIMIN
     Indication: HEPATIC CIRRHOSIS
     Route: 048
     Dates: start: 20200116
  2. XIFAXAN [Suspect]
     Active Substance: RIFAXIMIN
     Indication: HEPATIC ENCEPHALOPATHY

REACTIONS (4)
  - Hospitalisation [Unknown]
  - Decubitus ulcer [Not Recovered/Not Resolved]
  - Hepatic cirrhosis [Fatal]
  - Condition aggravated [Fatal]
